FAERS Safety Report 21465698 (Version 5)
Quarter: 2023Q1

REPORT INFORMATION
  Report Type: Spontaneous
  Country: DE (occurrence: DE)
  Receive Date: 20221017
  Receipt Date: 20230323
  Transmission Date: 20230417
  Serious: Yes (Other)
  Sender: FDA-Public Use
  Company Number: DE-AstraZeneca-2022A290870

PATIENT
  Age: 64 Year
  Sex: Male

DRUGS (10)
  1. FINGOLIMOD [Suspect]
     Active Substance: FINGOLIMOD
     Indication: COVID-19 immunisation
     Dosage: UNK
     Route: 065
  2. FINGOLIMOD [Suspect]
     Active Substance: FINGOLIMOD
     Indication: Relapsing-remitting multiple sclerosis
  3. TOZINAMERAN [Suspect]
     Active Substance: TOZINAMERAN
     Indication: COVID-19 immunisation
     Dosage: UNK
     Route: 065
     Dates: start: 20210629
  4. TOZINAMERAN [Suspect]
     Active Substance: TOZINAMERAN
     Dosage: UNK
     Route: 065
     Dates: start: 20211123
  5. VAXZEVRIA [Suspect]
     Active Substance: AZD-1222
     Indication: COVID-19 immunisation
     Dosage: UNK
     Route: 030
     Dates: start: 20210502
  6. SOTROVIMAB [Concomitant]
     Active Substance: SOTROVIMAB
     Indication: COVID-19 prophylaxis
     Dosage: 500 MILLIGRAM, EVERY 8WEEKS
     Route: 042
     Dates: start: 20220209
  7. SOTROVIMAB [Concomitant]
     Active Substance: SOTROVIMAB
     Indication: Prophylaxis
  8. CASIRIVIMAB\IMDEVIMAB [Concomitant]
     Active Substance: CASIRIVIMAB\IMDEVIMAB
     Indication: COVID-19 prophylaxis
     Dosage: 600 MILLIGRAM, Q28D,EVERY FOUR WEEKS
     Route: 065
     Dates: start: 20220112
  9. EVUSHELD [Concomitant]
     Active Substance: CILGAVIMAB\TIXAGEVIMAB
     Indication: COVID-19 prophylaxis
     Dosage: UNK(150MG/150MG FOR EVERY SIX MONTHS)
     Route: 042
     Dates: start: 20220406
  10. EVUSHELD [Concomitant]
     Active Substance: CILGAVIMAB\TIXAGEVIMAB
     Indication: Prophylaxis

REACTIONS (5)
  - Relapsing-remitting multiple sclerosis [Unknown]
  - Decreased immune responsiveness [Unknown]
  - Vaccination failure [Unknown]
  - Immunodeficiency [Unknown]
  - Off label use [Unknown]
